FAERS Safety Report 14298269 (Version 1)
Quarter: 2017Q4

REPORT INFORMATION
  Report Type: Spontaneous
  Country: US (occurrence: US)
  Receive Date: 20171215
  Receipt Date: 20171215
  Transmission Date: 20180321
  Serious: No
  Sender: FDA-Public Use
  Company Number: None

PATIENT
  Sex: Female
  Weight: 83.25 kg

DRUGS (3)
  1. ESTRADIOL TRANSDERMAL SYSTEM [Suspect]
     Active Substance: ESTRADIOL
     Indication: HORMONE REPLACEMENT THERAPY
     Dosage: ?          QUANTITY:1 PATCH(ES);OTHER FREQUENCY:2/WEEK;?
     Route: 062
     Dates: start: 20160930, end: 20171215
  2. ESTRADIOL TRANSDERMAL SYSTEM [Suspect]
     Active Substance: ESTRADIOL
     Indication: HYSTERECTOMY
     Dosage: ?          QUANTITY:1 PATCH(ES);OTHER FREQUENCY:2/WEEK;?
     Route: 062
     Dates: start: 20160930, end: 20171215
  3. VIVELLE-DOT [Concomitant]
     Active Substance: ESTRADIOL

REACTIONS (3)
  - Incorrect drug administration duration [None]
  - Application site irritation [None]
  - Application site wound [None]

NARRATIVE: CASE EVENT DATE: 20171215
